FAERS Safety Report 6215732-2 (Version None)
Quarter: 2009Q2

REPORT INFORMATION
  Report Type: 
  Country: None (occurrence: None)
  Receive Date: 20090605
  Receipt Date: 20090602
  Transmission Date: 20091009
  Serious: Yes (Death)
  Sender: FDA-Public Use
  Company Number: HU-SANOFI-SYNTHELABO-F01200801771

PATIENT
  Sex: Male
  Weight: 79 kg

DRUGS (8)
  1. PEGFILGRASTIM [Concomitant]
     Route: 065
  2. FUROSEMIDE [Concomitant]
     Route: 065
  3. OMEPRAZOLE [Concomitant]
     Route: 065
  4. FLUOROURACIL [Suspect]
     Route: 042
     Dates: start: 20081027, end: 20081029
  5. DOCETAXEL [Suspect]
     Route: 041
     Dates: start: 20081027, end: 20081027
  6. OXALIPLATIN [Suspect]
     Indication: GASTRIC CANCER
     Route: 041
     Dates: start: 20081027, end: 20081027
  7. FERRUM + FOLIC ACID [Concomitant]
     Route: 065
  8. METHYLPREDNISOLONE [Concomitant]
     Route: 065

REACTIONS (1)
  - DISSEMINATED INTRAVASCULAR COAGULATION [None]
